FAERS Safety Report 5159261-6 (Version None)
Quarter: 2006Q4

REPORT INFORMATION
  Report Type: 
  Country: None (occurrence: None)
  Receive Date: 20061120
  Receipt Date: 20061102
  Transmission Date: 20070319
  Serious: Yes (Other)
  Sender: FDA-Public Use
  Company Number: ACO_0236_2006

PATIENT
  Age: 55 Year
  Sex: Female
  Weight: 53 kg

DRUGS (9)
  1. TERNELIN [Suspect]
     Indication: TENSION HEADACHE
     Dosage: 1 MG, BID; PO
     Route: 048
     Dates: start: 20060531, end: 20060613
  2. TERNELIN [Suspect]
     Indication: TENSION HEADACHE
     Dosage: 1 MG, QDAY; PO
     Route: 048
     Dates: start: 20060614
  3. TEGRETOL [Concomitant]
  4. VALERIN [Concomitant]
  5. PURSENNID [Concomitant]
  6. SEROQUEL [Concomitant]
  7. URSO [Concomitant]
  8. OMEPRAL [Concomitant]
  9. MAGNESIUM OXIDE [Concomitant]

REACTIONS (4)
  - BLOOD PRESSURE DIASTOLIC DECREASED [None]
  - BODY TEMPERATURE DECREASED [None]
  - MALAISE [None]
  - VOMITING [None]
